FAERS Safety Report 9331225 (Version 1)
Quarter: 2013Q2

REPORT INFORMATION
  Report Type: Spontaneous
  Country: US (occurrence: US)
  Receive Date: 20130605
  Receipt Date: 20130605
  Transmission Date: 20140414
  Serious: Yes (Hospitalization)
  Sender: FDA-Public Use
  Company Number: US-SANOFI-AVENTIS-2013SA055819

PATIENT
  Age: 83 Year
  Sex: Male

DRUGS (3)
  1. LANTUS [Suspect]
     Indication: TYPE 2 DIABETES MELLITUS
     Dosage: DOSE:14 UNIT(S)
     Route: 058
  2. LANTUS SOLOSTAR [Suspect]
     Route: 058
  3. SOLOSTAR [Suspect]

REACTIONS (4)
  - Biliary colic [Unknown]
  - Cholecystitis infective [Unknown]
  - Feeling abnormal [Unknown]
  - Leukaemia [Unknown]
